FAERS Safety Report 8271218-5 (Version None)
Quarter: 2012Q2

REPORT INFORMATION
  Report Type: 
  Country: None (occurrence: None)
  Receive Date: 20120410
  Receipt Date: 20120403
  Transmission Date: 20120825
  Serious: Yes (Other)
  Sender: FDA-Public Use
  Company Number: US-UCBSA-054595

PATIENT
  Sex: Female

DRUGS (1)
  1. CIMZIA [Suspect]
     Route: 058

REACTIONS (1)
  - THYROID CANCER [None]
